FAERS Safety Report 7509621-0 (Version None)
Quarter: 2011Q2

REPORT INFORMATION
  Report Type: 
  Country: None (occurrence: None)
  Receive Date: 20110527
  Receipt Date: 20110513
  Transmission Date: 20111010
  Serious: Yes (Hospitalization)
  Sender: FDA-Public Use
  Company Number: FR-JNJFOC-20110404969

PATIENT
  Age: 35 Year
  Sex: Male
  Weight: 175 kg

DRUGS (1)
  1. REMICADE [Suspect]
     Indication: CROHN'S DISEASE
     Route: 042
     Dates: start: 20030101, end: 20110406

REACTIONS (2)
  - MENINGEAL DISORDER [None]
  - HYPERTENSION [None]
